FAERS Safety Report 4626660-8 (Version None)
Quarter: 2005Q1

REPORT INFORMATION
  Report Type: 
  Country: None (occurrence: None)
  Receive Date: 20050330
  Receipt Date: 20050317
  Transmission Date: 20050727
  Serious: Yes (Other)
  Sender: FDA-Public Use
  Company Number: 2005US000270

PATIENT
  Sex: Female

DRUGS (1)
  1. ADENOSCAN [Suspect]
     Indication: SCAN MYOCARDIAL PERFUSION
     Dosage: 140.00 RK/MIN, TOTAL DOSE, INTRAVENOUS
     Route: 042
     Dates: start: 20050228, end: 20050228

REACTIONS (2)
  - AURA [None]
  - SIMPLE PARTIAL SEIZURES [None]
